FAERS Safety Report 14176107 (Version 4)
Quarter: 2018Q2

REPORT INFORMATION
  Report Type: Report from Study
  Country: US (occurrence: US)
  Receive Date: 20171109
  Receipt Date: 20180509
  Transmission Date: 20180711
  Serious: Yes (Hospitalization)
  Sender: FDA-Public Use
  Company Number: US-ACTELION-A-NJ2015-115093

PATIENT
  Age: 78 Year
  Sex: Male
  Weight: 103.86 kg

DRUGS (1)
  1. TRACLEER [Suspect]
     Active Substance: BOSENTAN
     Indication: PULMONARY ARTERIAL HYPERTENSION
     Dosage: 125 MG, BID
     Route: 048

REACTIONS (6)
  - Joint injury [Unknown]
  - Knee operation [Unknown]
  - Leg amputation [Unknown]
  - Sinusitis [Unknown]
  - Suture rupture [Unknown]
  - Pulmonary congestion [Unknown]
